FAERS Safety Report 4738312-4 (Version None)
Quarter: 2005Q3

REPORT INFORMATION
  Report Type: 
  Country: None (occurrence: None)
  Receive Date: 20050809
  Receipt Date: 20050729
  Transmission Date: 20060218
  Serious: Yes (Hospitalization)
  Sender: FDA-Public Use
  Company Number: 2005UW11280

PATIENT
  Age: 57 Year
  Sex: Male
  Weight: 72 kg

DRUGS (10)
  1. CRESTOR [Suspect]
     Indication: HYPERCHOLESTEROLAEMIA
     Route: 048
     Dates: start: 20050601, end: 20050726
  2. BEZALIP SR [Interacting]
     Indication: HYPERCHOLESTEROLAEMIA
     Dates: start: 20050201, end: 20050726
  3. FUROSEMIDE [Concomitant]
  4. RANITIDINE [Concomitant]
  5. CARVEDILOL [Concomitant]
  6. CAPTOPRIL [Concomitant]
  7. ASPIRIN [Concomitant]
  8. DIGOXIN [Concomitant]
  9. BRICANYL [Concomitant]
     Route: 055
  10. NITROGLYCERIN [Concomitant]

REACTIONS (9)
  - CHEST PAIN [None]
  - DEHYDRATION [None]
  - DIARRHOEA [None]
  - DRUG INTERACTION [None]
  - HEAT STROKE [None]
  - HYPERKALAEMIA [None]
  - RENAL FAILURE ACUTE [None]
  - RHABDOMYOLYSIS [None]
  - THERAPEUTIC AGENT TOXICITY [None]
